FAERS Safety Report 9092071 (Version 1)
Quarter: 2013Q1

REPORT INFORMATION
  Report Type: Spontaneous
  Country: PT (occurrence: PT)
  Receive Date: 20130131
  Receipt Date: 20130131
  Transmission Date: 20140127
  Serious: Yes (Life-Threatening)
  Sender: FDA-Public Use
  Company Number: PHHY2013PT007287

PATIENT
  Age: 28 Year
  Sex: Male
  Weight: 55 kg

DRUGS (1)
  1. TEGRETOL CR [Suspect]
     Indication: PAIN
     Dosage: 2 TABLETS/DAY
     Route: 048
     Dates: start: 20120312

REACTIONS (7)
  - Suicidal ideation [Recovering/Resolving]
  - Altered state of consciousness [Recovering/Resolving]
  - Abnormal behaviour [Recovering/Resolving]
  - Aggression [Recovering/Resolving]
  - Anxiety [Recovering/Resolving]
  - Anger [Recovering/Resolving]
  - Toxicity to various agents [Recovering/Resolving]
